FAERS Safety Report 8834336 (Version 2)
Quarter: 2012Q4

REPORT INFORMATION
  Report Type: 
  Country: CZ (occurrence: CZ)
  Receive Date: 20121010
  Receipt Date: 20121016
  Transmission Date: 20130627
  Serious: Yes (Other)
  Sender: FDA-Public Use
  Company Number: CZ-PFIZER INC-2012250059

PATIENT
  Age: 41 Year
  Sex: Female

DRUGS (14)
  1. METHYLPREDNISOLONE SODIUM SUCCINATE [Suspect]
     Indication: TRANSPLANT REJECTION
     Dosage: pulse dose
     Route: 042
  2. PREDNISON [Suspect]
     Dosage: 35 mg/ day
  3. TACROLIMUS [Concomitant]
     Dosage: 19 mg/ day
  4. MYCOPHENOLATE MOFETIL [Concomitant]
     Dosage: 2.5 g/ day
  5. CIPROFLOXACIN [Concomitant]
     Dosage: 1000 mg/ day
  6. VALGANCICLOVIR [Concomitant]
     Dosage: 900 mg/day
  7. CLOTRIMAZOLE [Concomitant]
     Dosage: 4x/day
     Route: 048
  8. BISEPTOL [Concomitant]
     Dosage: 960 mg/day
  9. METOPROLOL SUCCINATE [Concomitant]
     Dosage: 50 mg/day
  10. RAMIPRIL [Concomitant]
     Dosage: 5 mg/ day
  11. FLUVASTATIN [Concomitant]
     Dosage: 80 mg/day
  12. ACETYLSALICYLIC ACID [Concomitant]
     Dosage: 100 mg/ day
  13. QUETIAPINE [Concomitant]
     Dosage: 600 mg/day
  14. CITALOPRAM [Concomitant]
     Dosage: 40 mg/ day

REACTIONS (1)
  - Type 2 diabetes mellitus [Unknown]
